FAERS Safety Report 7471316-X (Version None)
Quarter: 2011Q2

REPORT INFORMATION
  Report Type: 
  Country: None (occurrence: None)
  Receive Date: 20110510
  Receipt Date: 20110509
  Transmission Date: 20111010
  Serious: Yes (Death, Hospitalization)
  Sender: FDA-Public Use
  Company Number: BR-GILEAD-2011-0038618

PATIENT
  Sex: Male
  Weight: 60 kg

DRUGS (5)
  1. EFAVIRENZ [Suspect]
     Indication: HIV INFECTION
     Route: 048
     Dates: start: 20110314, end: 20110419
  2. LAMIVUDINE [Suspect]
     Indication: HIV INFECTION
     Dates: start: 20110314, end: 20110419
  3. ISONIAZID [Concomitant]
     Indication: TUBERCULOSIS
     Dates: start: 20110207, end: 20110419
  4. RIFAMPIN [Concomitant]
     Indication: TUBERCULOSIS
     Dates: start: 20110207, end: 20110419
  5. VIREAD [Suspect]
     Indication: HIV INFECTION
     Route: 048
     Dates: start: 20110314, end: 20110419

REACTIONS (1)
  - IMMUNE RECONSTITUTION SYNDROME [None]
